FAERS Safety Report 12293630 (Version 1)
Quarter: 2016Q2

REPORT INFORMATION
  Report Type: Report from Study
  Country: US (occurrence: US)
  Receive Date: 20160421
  Receipt Date: 20160421
  Transmission Date: 20160815
  Serious: Yes (Other)
  Sender: FDA-Public Use
  Company Number: US-GILEAD-2016-0208033

PATIENT
  Age: 76 Year
  Sex: Female

DRUGS (35)
  1. OXYCODONE [Concomitant]
     Active Substance: OXYCODONE
  2. BACLOFEN. [Concomitant]
     Active Substance: BACLOFEN
  3. LEXAPRO [Concomitant]
     Active Substance: ESCITALOPRAM OXALATE
  4. NITROFURANTOIN. [Concomitant]
     Active Substance: NITROFURANTOIN
  5. MORPHINE [Concomitant]
     Active Substance: MORPHINE
  6. SPIRONOLACTONE. [Concomitant]
     Active Substance: SPIRONOLACTONE
  7. KETOPROFEN. [Concomitant]
     Active Substance: KETOPROFEN
  8. NYSTATIN. [Concomitant]
     Active Substance: NYSTATIN
  9. ZANTAC [Concomitant]
     Active Substance: RANITIDINE HYDROCHLORIDE
  10. BYSTOLIC [Concomitant]
     Active Substance: NEBIVOLOL HYDROCHLORIDE
  11. OMEPRAZOLE. [Concomitant]
     Active Substance: OMEPRAZOLE
  12. PHENERGAN [Concomitant]
     Active Substance: PROMETHAZINE HYDROCHLORIDE
  13. CELEXA [Concomitant]
     Active Substance: CITALOPRAM HYDROBROMIDE
  14. FENTANYL. [Concomitant]
     Active Substance: FENTANYL
  15. LORTAB [Concomitant]
     Active Substance: ACETAMINOPHEN\HYDROCODONE BITARTRATE
  16. AMBRISENTAN [Suspect]
     Active Substance: AMBRISENTAN
     Indication: PULMONARY HYPERTENSION
     Dosage: 10 MG, QD
     Route: 048
     Dates: start: 20140502
  17. AMBRISENTAN [Suspect]
     Active Substance: AMBRISENTAN
     Dosage: 5 MG, QD
     Route: 048
  18. GABAPENTIN. [Concomitant]
     Active Substance: GABAPENTIN
  19. IBUPROFEN. [Concomitant]
     Active Substance: IBUPROFEN
  20. GUAIFENESIN. [Concomitant]
     Active Substance: GUAIFENESIN
  21. LEVAQUIN [Concomitant]
     Active Substance: LEVOFLOXACIN
  22. ISOSORBIDE. [Concomitant]
     Active Substance: ISOSORBIDE
  23. IPRATROPIUM/ALBUTEROL [Concomitant]
     Active Substance: ALBUTEROL\IPRATROPIUM
  24. LIDOCAINE. [Concomitant]
     Active Substance: LIDOCAINE
  25. POTASSIUM CHLORIDE. [Concomitant]
     Active Substance: POTASSIUM CHLORIDE
  26. FUROSEMIDE. [Concomitant]
     Active Substance: FUROSEMIDE
  27. OXYGEN. [Concomitant]
     Active Substance: OXYGEN
  28. LORAZEPAM. [Concomitant]
     Active Substance: LORAZEPAM
  29. NEXIUM [Concomitant]
     Active Substance: ESOMEPRAZOLE MAGNESIUM
  30. DIFLUCAN [Concomitant]
     Active Substance: FLUCONAZOLE
  31. PREDNISONE. [Concomitant]
     Active Substance: PREDNISONE
  32. SENNA PLUS                         /00142201/ [Concomitant]
  33. ACETAMINOPHEN\HYDROCODONE BITARTRATE [Concomitant]
     Active Substance: ACETAMINOPHEN\HYDROCODONE BITARTRATE
  34. DILAUDID [Concomitant]
     Active Substance: HYDROMORPHONE HYDROCHLORIDE
  35. MS CONTIN [Concomitant]
     Active Substance: MORPHINE SULFATE

REACTIONS (2)
  - Swelling face [Not Recovered/Not Resolved]
  - Hallucination [Not Recovered/Not Resolved]

NARRATIVE: CASE EVENT DATE: 20160323
